FAERS Safety Report 16585562 (Version 1)
Quarter: 2019Q3

REPORT INFORMATION
  Report Type: Spontaneous
  Country: FR (occurrence: FR)
  Receive Date: 20190717
  Receipt Date: 20190717
  Transmission Date: 20191004
  Serious: Yes (Other)
  Sender: FDA-Public Use
  Company Number: FR-ELI_LILLY_AND_COMPANY-FR201907004918

PATIENT
  Sex: Male

DRUGS (11)
  1. LOCOID [Concomitant]
     Active Substance: HYDROCORTISONE BUTYRATE
     Dosage: UNK UNK, UNKNOWN
  2. MYCOSTER [CICLOPIROX] [Concomitant]
     Dosage: UNK UNK, UNKNOWN
  3. DAIVOBET [Concomitant]
     Active Substance: BETAMETHASONE DIPROPIONATE\CALCIPOTRIENE
     Dosage: UNK UNK, UNKNOWN
  4. LOCAPRED [Concomitant]
     Active Substance: DESONIDE
     Dosage: UNK UNK, UNKNOWN
  5. DIPROSONE [Concomitant]
     Active Substance: BETAMETHASONE DIPROPIONATE
     Dosage: UNK UNK, UNKNOWN
  6. KETOCONAZOLE. [Concomitant]
     Active Substance: KETOCONAZOLE
     Dosage: UNK UNK, UNKNOWN
  7. TALTZ [Suspect]
     Active Substance: IXEKIZUMAB
     Indication: PSORIASIS
     Dosage: 80 MG, BID
     Route: 065
     Dates: start: 20190520, end: 20190520
  8. EPIDUO [Concomitant]
     Active Substance: ADAPALENE\BENZOYL PEROXIDE
     Dosage: UNK UNK, UNKNOWN
  9. TALTZ [Suspect]
     Active Substance: IXEKIZUMAB
     Dosage: UNK UNK, UNKNOWN
     Route: 065
  10. LITHIODERM [Concomitant]
     Active Substance: LITHIUM GLUCONATE
     Dosage: UNK UNK, UNKNOWN
  11. SEBIPROX [Concomitant]
     Active Substance: CICLOPIROX OLAMINE
     Dosage: UNK UNK, UNKNOWN

REACTIONS (8)
  - Nasal injury [Unknown]
  - Injection site pain [Recovering/Resolving]
  - Anxiety [Unknown]
  - Loss of consciousness [Recovered/Resolved]
  - Lip injury [Unknown]
  - Injection site bruising [Unknown]
  - Lip haemorrhage [Unknown]
  - Presyncope [Unknown]

NARRATIVE: CASE EVENT DATE: 20190520
